FAERS Safety Report 9650898 (Version 3)
Quarter: 2013Q4

REPORT INFORMATION
  Report Type: Spontaneous
  Country: US (occurrence: US)
  Receive Date: 20131029
  Receipt Date: 20131202
  Transmission Date: 20140711
  Serious: Yes (Other)
  Sender: FDA-Public Use
  Company Number: US-PFIZER INC-2013303322

PATIENT
  Age: 60 Year
  Sex: Male
  Weight: 72.56 kg

DRUGS (4)
  1. ZOLOFT [Suspect]
     Dosage: UNK
  2. VIAGRA [Interacting]
     Indication: ERECTILE DYSFUNCTION
     Dosage: 100 MG, AS NEEDED
  3. LIPITOR [Concomitant]
     Indication: BLOOD CHOLESTEROL ABNORMAL
     Dosage: 40 MG, DAILY
  4. METFORMIN HYDROCHLORIDE [Concomitant]
     Indication: DIABETES MELLITUS
     Dosage: 500 MG, 4X/DAY

REACTIONS (3)
  - Prostate cancer [Unknown]
  - Drug ineffective [Unknown]
  - Drug interaction [Unknown]
